FAERS Safety Report 7915433 (Version 4)
Quarter: 2013Q1

REPORT INFORMATION
  Report Type: Spontaneous
  Country: US (occurrence: US)
  Receive Date: 20110426
  Receipt Date: 20130206
  Transmission Date: 20140127
  Serious: Yes (Death, Hospitalization)
  Sender: FDA-Public Use
  Company Number: US-BAYER-2011-032370

PATIENT
  Age: 37 Year
  Sex: Female
  Weight: 95.24 kg

DRUGS (12)
  1. YASMIN [Suspect]
     Indication: CONTRACEPTION
     Dosage: UNK
     Dates: start: 20040121, end: 20080426
  2. YASMIN [Suspect]
     Indication: PREMENSTRUAL SYNDROME
  3. YASMIN [Suspect]
     Indication: MIGRAINE
  4. YASMIN [Suspect]
     Indication: MENSTRUATION IRREGULAR
  5. IMITREX [Concomitant]
     Dosage: UNK UNK, PRN
     Dates: start: 2001
  6. IBUPROFEN [Concomitant]
     Dosage: UNK UNK, PRN
     Dates: start: 2001
  7. CYCLOBENZAPRINE [Concomitant]
     Dosage: UNK UNK, PRN
     Dates: start: 2001
  8. PRILOSEC [Concomitant]
     Dosage: UNK UNK, QD
  9. CELEXA [Concomitant]
     Dosage: UNK UNK, QD
  10. TRAZODONE [Concomitant]
     Dosage: UNK UNK, PRN
  11. RETAVASE [Concomitant]
  12. NITROPRUSSIDE [Concomitant]
     Indication: HYPERTENSION

REACTIONS (21)
  - Pulmonary embolism [Fatal]
  - Deep vein thrombosis [Fatal]
  - Cardiac arrest [Fatal]
  - Brain injury [Fatal]
  - Cerebral haemorrhage [Fatal]
  - Brain oedema [Fatal]
  - Renal failure [Fatal]
  - Shock [Fatal]
  - Pain [Fatal]
  - Injury [Fatal]
  - Sinus tachycardia [Fatal]
  - Hypertension [Fatal]
  - Hypotension [Fatal]
  - Nausea [Fatal]
  - Pulse absent [Fatal]
  - Acute respiratory failure [Fatal]
  - Apnoea [Fatal]
  - Respiratory tract oedema [Fatal]
  - Neurodegenerative disorder [Fatal]
  - Motor dysfunction [Fatal]
  - Respiratory arrest [Fatal]
